FAERS Safety Report 23776015 (Version 1)
Quarter: 2024Q2

REPORT INFORMATION
  Report Type: Spontaneous
  Country: BH (occurrence: BH)
  Receive Date: 20240424
  Receipt Date: 20240424
  Transmission Date: 20240716
  Serious: Yes (Hospitalization, Other)
  Sender: FDA-Public Use
  Company Number: BH-IPCA LABORATORIES LIMITED-IPC-2024-BH-000989

PATIENT

DRUGS (1)
  1. WARFARIN [Suspect]
     Active Substance: WARFARIN
     Indication: Product used for unknown indication
     Dosage: 6.5 MILLIGRAM
     Route: 065

REACTIONS (2)
  - Haemoperitoneum [Recovered/Resolved]
  - Coagulopathy [Recovered/Resolved]
